FAERS Safety Report 20662980 (Version 1)
Quarter: 2022Q2

REPORT INFORMATION
  Report Type: Spontaneous
  Country: US (occurrence: US)
  Receive Date: 20220401
  Receipt Date: 20220401
  Transmission Date: 20220721
  Serious: Yes (Other)
  Sender: FDA-Public Use
  Company Number: US-CELLTRION INC.-2022US003777

PATIENT

DRUGS (2)
  1. TRUXIMA [Suspect]
     Active Substance: RITUXIMAB-ABBS
     Indication: Arteritis
     Dosage: 500 MG, DAY 1, 15
     Route: 042
     Dates: start: 20211005
  2. TRUXIMA [Suspect]
     Active Substance: RITUXIMAB-ABBS
     Indication: Nephritic syndrome

REACTIONS (3)
  - Nephritic syndrome [Unknown]
  - Arteritis [Unknown]
  - Off label use [Unknown]
